FAERS Safety Report 16986025 (Version 1)
Quarter: 2019Q4

REPORT INFORMATION
  Report Type: Spontaneous
  Country: US (occurrence: US)
  Receive Date: 20190917
  Receipt Date: 20190917
  Transmission Date: 20200122
  Serious: Yes (Other)
  Sender: FDA-Public Use
  Company Number: None

PATIENT
  Age: 70 Year
  Sex: Female

DRUGS (1)
  1. NALTREXONE 1.5MG TABLET LOT LG [Suspect]
     Active Substance: NALTREXONE
     Indication: MYALGIA
     Route: 048
     Dates: start: 20190510

REACTIONS (6)
  - Dyspnoea [None]
  - Rash [None]
  - Cough [None]
  - Drug ineffective [None]
  - Skin lesion [None]
  - Reaction to excipient [None]

NARRATIVE: CASE EVENT DATE: 20190815
